FAERS Safety Report 5619543-8 (Version None)
Quarter: 2008Q1

REPORT INFORMATION
  Report Type: 
  Country: None (occurrence: None)
  Receive Date: 20080205
  Receipt Date: 20080205
  Transmission Date: 20080703
  Serious: Yes (Hospitalization)
  Sender: FDA-Public Use
  Company Number: None

PATIENT
  Sex: Male
  Weight: 70.3075 kg

DRUGS (8)
  1. DOCETAXEL [Suspect]
     Indication: NON-SMALL CELL LUNG CANCER METASTATIC
     Dosage: 66MG IV/250ML 0.9NS
     Route: 042
     Dates: start: 20070820
  2. CAPECITABINE 500MG AND 150MG TABLETS (ROCHE) [Suspect]
     Indication: NON-SMALL CELL LUNG CANCER METASTATIC
     Dosage: 1150MG PO BID D5-18   AM ONLY
     Route: 048
     Dates: start: 20070824
  3. CAPECITABINE 500MG AND 150MG TABLETS (ROCHE) [Suspect]
     Indication: NON-SMALL CELL LUNG CANCER METASTATIC
     Dosage: 1150MG PO BID D5-18   AM ONLY
     Route: 048
     Dates: start: 20070825
  4. CAPECITABINE 500MG AND 150MG TABLETS (ROCHE) [Suspect]
     Indication: NON-SMALL CELL LUNG CANCER METASTATIC
     Dosage: 1150MG PO BID D5-18   AM ONLY
     Route: 048
     Dates: start: 20070826
  5. . [Concomitant]
  6. DECADRON [Concomitant]
  7. DOCETAXEL [Concomitant]
  8. DEXAMETHASONE OPHTHALMIC SUSPENSION [Concomitant]

REACTIONS (2)
  - CORONARY ARTERY DISEASE [None]
  - MYOCARDIAL INFARCTION [None]
